FAERS Safety Report 14301404 (Version 1)
Quarter: 2017Q4

REPORT INFORMATION
  Report Type: Spontaneous
  Country: US (occurrence: US)
  Receive Date: 20171218
  Receipt Date: 20171218
  Transmission Date: 20180321
  Serious: Yes (Death)
  Sender: FDA-Public Use
  Company Number: None

PATIENT
  Age: 82 Year
  Sex: Female

DRUGS (14)
  1. AFINITOR [Suspect]
     Active Substance: EVEROLIMUS
     Indication: NEOPLASM MALIGNANT
     Route: 048
     Dates: start: 20170727
  2. PREDNISONE. [Concomitant]
     Active Substance: PREDNISONE
  3. CALTRATE [Concomitant]
     Active Substance: CALCIUM CARBONATE
  4. CLONAZEPAM. [Concomitant]
     Active Substance: CLONAZEPAM
  5. EXEMESTANE. [Concomitant]
     Active Substance: EXEMESTANE
  6. FOLIC ACID. [Concomitant]
     Active Substance: FOLIC ACID
  7. GLIPIZIDE. [Concomitant]
     Active Substance: GLIPIZIDE
  8. SUDAFED [Concomitant]
     Active Substance: PSEUDOEPHEDRINE HYDROCHLORIDE
  9. LEVOTHYROXINE. [Concomitant]
     Active Substance: LEVOTHYROXINE
  10. ADVAIR HFA [Concomitant]
     Active Substance: FLUTICASONE PROPIONATE\SALMETEROL XINAFOATE
  11. XARELTO [Concomitant]
     Active Substance: RIVAROXABAN
  12. ANASTROZOLE. [Concomitant]
     Active Substance: ANASTROZOLE
  13. DOCQLACE [Concomitant]
     Active Substance: DOCUSATE SODIUM
  14. LORATADINE. [Concomitant]
     Active Substance: LORATADINE

REACTIONS (1)
  - Death [None]

NARRATIVE: CASE EVENT DATE: 20171128
